FAERS Safety Report 17620344 (Version 1)
Quarter: 2020Q2

REPORT INFORMATION
  Report Type: Spontaneous
  Country: FR (occurrence: FR)
  Receive Date: 20200403
  Receipt Date: 20200403
  Transmission Date: 20200713
  Serious: Yes (Other)
  Sender: FDA-Public Use
  Company Number: FR-ASTRAZENECA-2020SE45640

PATIENT
  Age: 66 Year
  Sex: Male
  Weight: 89 kg

DRUGS (15)
  1. CELLCEPT [Concomitant]
     Active Substance: MYCOPHENOLATE MOFETIL\MYCOPHENOLATE MOFETIL HYDROCHLORIDE
     Indication: ORGAN TRANSPLANT
     Route: 048
     Dates: start: 20100201
  2. ALDACTONE [Concomitant]
     Active Substance: SPIRONOLACTONE
     Indication: HYPERTROPHIC CARDIOMYOPATHY
     Route: 048
  3. CRESTOR [Suspect]
     Active Substance: ROSUVASTATIN CALCIUM
     Indication: HYPERCHOLESTEROLAEMIA
     Route: 048
     Dates: start: 2011, end: 201701
  4. LASILIX [Concomitant]
     Active Substance: FUROSEMIDE
     Indication: HYPERTROPHIC CARDIOMYOPATHY
     Route: 048
  5. NEORAL [Suspect]
     Active Substance: CYCLOSPORINE
     Indication: ORGAN TRANSPLANT
     Route: 048
     Dates: start: 201612
  6. KARDEGIC [Concomitant]
     Active Substance: ASPIRIN DL-LYSINE
     Indication: HYPERTROPHIC CARDIOMYOPATHY
     Dosage: L
     Route: 048
  7. RINOCLENIL [Concomitant]
     Active Substance: BECLOMETHASONE
     Indication: BRONCHIAL DISORDER
     Route: 055
  8. CORTANCYL [Concomitant]
     Active Substance: PREDNISONE
     Indication: ORGAN TRANSPLANT
     Route: 048
     Dates: start: 20100201, end: 20200304
  9. WYSTAMM [Concomitant]
     Active Substance: RUPATADINE FUMARATE
     Indication: SINUSITIS
     Route: 048
  10. MICARDIS [Concomitant]
     Active Substance: TELMISARTAN
     Indication: HYPERTENSION
     Route: 048
  11. SYMBICORT [Concomitant]
     Active Substance: BUDESONIDE\FORMOTEROL FUMARATE DIHYDRATE
     Indication: BRONCHIAL DISORDER
     Route: 055
  12. INEXIUM [Concomitant]
     Active Substance: ESOMEPRAZOLE
     Indication: GASTRITIS
     Route: 048
  13. TARDYFERON B9 [Concomitant]
     Active Substance: FERROUS SULFATE\FOLIC ACID\GASTRIC MUCIN
     Indication: ANAEMIA
     Route: 048
  14. LIPTRUZET [Suspect]
     Active Substance: ATORVASTATIN CALCIUM\EZETIMIBE
     Indication: HYPERCHOLESTEROLAEMIA
     Dosage: 1 LE SOIR
     Route: 048
     Dates: start: 201701
  15. HYDROCORTISONE. [Concomitant]
     Active Substance: HYDROCORTISONE
     Indication: ORGAN TRANSPLANT
     Route: 048
     Dates: start: 20200304

REACTIONS (2)
  - Acute motor-sensory axonal neuropathy [Not Recovered/Not Resolved]
  - Neuropathy peripheral [Not Recovered/Not Resolved]

NARRATIVE: CASE EVENT DATE: 2017
